FAERS Safety Report 12314048 (Version 3)
Quarter: 2017Q1

REPORT INFORMATION
  Report Type: Spontaneous
  Country: US (occurrence: US)
  Receive Date: 20160428
  Receipt Date: 20170331
  Transmission Date: 20170428
  Serious: Yes (Other)
  Sender: FDA-Public Use
  Company Number: US-JNJFOC-20160421829

PATIENT
  Sex: Male
  Weight: 79.83 kg

DRUGS (5)
  1. RANITIDINE. [Concomitant]
     Active Substance: RANITIDINE
     Indication: DYSPEPSIA
     Route: 065
     Dates: start: 20160201
  2. RISPERDAL CONSTA [Suspect]
     Active Substance: RISPERIDONE
     Indication: MENTAL DISORDER
     Route: 030
     Dates: start: 20150713
  3. MELATONIN [Concomitant]
     Active Substance: MELATONIN
     Indication: INSOMNIA
     Dosage: AS NECESSARY
     Route: 065
     Dates: start: 20160201
  4. CHOLECALCIFEROL [Concomitant]
     Active Substance: CHOLECALCIFEROL
     Route: 065
     Dates: start: 20151221
  5. NAPROXEN SODIUM. [Concomitant]
     Active Substance: NAPROXEN SODIUM
     Indication: PAIN
     Dosage: AS NECESSARY.
     Route: 065
     Dates: start: 20160201

REACTIONS (10)
  - Road traffic accident [Unknown]
  - Mania [Unknown]
  - Gastrooesophageal reflux disease [Unknown]
  - Contusion [Unknown]
  - Schizophrenia [Unknown]
  - Post-traumatic stress disorder [Unknown]
  - Nausea [Unknown]
  - Vomiting [Unknown]
  - Major depression [Unknown]
  - Hyperlipidaemia [Unknown]
